FAERS Safety Report 25910811 (Version 1)
Quarter: 2025Q4

REPORT INFORMATION
  Report Type: Spontaneous
  Country: US (occurrence: US)
  Receive Date: 20251013
  Receipt Date: 20251013
  Transmission Date: 20260117
  Serious: Yes (Death)
  Sender: TEVA
  Company Number: US-TEVA-VS-3379960

PATIENT
  Age: 68 Year
  Sex: Male

DRUGS (2)
  1. AUSTEDO [Suspect]
     Active Substance: DEUTETRABENAZINE
     Indication: Huntington^s disease
     Dosage: 9MG IN THE MORNING AND 21MG IN THE EVENING
     Route: 048
  2. AUSTEDO [Suspect]
     Active Substance: DEUTETRABENAZINE
     Indication: Huntington^s disease
     Dosage: 9MG IN THE MORNING AND 21MG IN THE EVENING
     Route: 048

REACTIONS (2)
  - Death [Fatal]
  - Product use issue [Unknown]
